FAERS Safety Report 17064464 (Version 1)
Quarter: 2019Q4

REPORT INFORMATION
  Report Type: Spontaneous
  Country: US (occurrence: US)
  Receive Date: 20191122
  Receipt Date: 20191122
  Transmission Date: 20200122
  Serious: No
  Sender: FDA-Public Use
  Company Number: US-PFIZER INC-2019501237

PATIENT
  Age: 56 Year
  Sex: Male
  Weight: 116 kg

DRUGS (1)
  1. AMLODIPINE BESILATE [Suspect]
     Active Substance: AMLODIPINE BESYLATE
     Dosage: UNK

REACTIONS (6)
  - Glossodynia [Unknown]
  - Swollen tongue [Unknown]
  - Genital swelling [Unknown]
  - Genital pain [Unknown]
  - Peripheral swelling [Unknown]
  - Pain in extremity [Unknown]
